FAERS Safety Report 4967054-5 (Version None)
Quarter: 2006Q1

REPORT INFORMATION
  Report Type: 
  Country: None (occurrence: None)
  Receive Date: 20060201
  Receipt Date: 20051222
  Transmission Date: 20060701
  Serious: No
  Sender: FDA-Public Use
  Company Number: 2005PV006230

PATIENT
  Age: 75 Year
  Sex: Female

DRUGS (7)
  1. BYETTA [Suspect]
     Indication: DIABETES MELLITUS NON-INSULIN-DEPENDENT
     Dosage: SEE IMAGE, SC
     Route: 058
     Dates: start: 20051010, end: 20051023
  2. BYETTA [Suspect]
     Indication: DIABETES MELLITUS NON-INSULIN-DEPENDENT
     Dosage: SEE IMAGE, SC
     Route: 058
     Dates: start: 20051024, end: 20051221
  3. HUMALOG [Concomitant]
  4. LOTREL [Concomitant]
  5. TOPROL-XL [Concomitant]
  6. NEXIUM [Concomitant]
  7. LANTUS [Concomitant]

REACTIONS (11)
  - ACNE [None]
  - CONFUSIONAL STATE [None]
  - DYSPEPSIA [None]
  - ERUCTATION [None]
  - FATIGUE [None]
  - HYPERCHLORHYDRIA [None]
  - HYPOAESTHESIA [None]
  - NAUSEA [None]
  - RASH PAPULAR [None]
  - SOMNOLENCE [None]
  - TINNITUS [None]
